FAERS Safety Report 21081551 (Version 1)
Quarter: 2022Q3

REPORT INFORMATION
  Report Type: Spontaneous
  Country: FR (occurrence: FR)
  Receive Date: 20220714
  Receipt Date: 20220714
  Transmission Date: 20221027
  Serious: Yes (Death, Other)
  Sender: FDA-Public Use
  Company Number: FR-ASTELLAS-2022US023909

PATIENT
  Age: 48 Year
  Sex: Male

DRUGS (11)
  1. AZACITIDINE [Suspect]
     Active Substance: AZACITIDINE
     Indication: Product used for unknown indication
     Dosage: 75 MILLIGRAM/SQ. METER, 75 MG/M2, UNKNOWN FREQ.(CYCLE 1 FROM DAY 1 TO DAY 7)
     Route: 065
     Dates: start: 20220110
  2. AZACITIDINE [Suspect]
     Active Substance: AZACITIDINE
     Dosage: UNK UNK, UNKNOWN FREQ. (CYCLE 2 OF TRIOTHERAPY)
     Route: 065
     Dates: start: 20220211
  3. AZACITIDINE [Suspect]
     Active Substance: AZACITIDINE
     Dosage: UNK UNK, UNKNOWN FREQ. (CYCLE 3 OF TRIOTHERAPY)
     Route: 065
     Dates: start: 20220311
  4. XOSPATA [Suspect]
     Active Substance: GILTERITINIB
     Indication: Acute myeloid leukaemia recurrent
     Dosage: 120 MILLIGRAM, QD, 120 MG, ONCE DAILY (3 TABLETS OF 40 MG), CYCLE 1
     Route: 048
     Dates: start: 20220110
  5. XOSPATA [Suspect]
     Active Substance: GILTERITINIB
     Dosage: UNK UNK, UNKNOWN FREQ. (CYCLE 2 OF TRIOTHERAPY)
     Route: 048
     Dates: start: 20220211
  6. XOSPATA [Suspect]
     Active Substance: GILTERITINIB
     Dosage: UNK UNK, UNKNOWN FREQ. (CYCLE 3 OF TRIOTHERAPY)
     Route: 048
     Dates: start: 20220311
  7. VENETOCLAX [Suspect]
     Active Substance: VENETOCLAX
     Indication: Infection
     Dosage: 70 MILLIGRAM, 70 MG, UNKNOWN FREQ. (CYCLE 1 FROM DAY 8 TO DAY 28)
     Route: 065
  8. VENETOCLAX [Suspect]
     Active Substance: VENETOCLAX
     Dosage: 400 MILLIGRAM, 400 MG, UNKNOWN FREQ. (CYCLE 1 FROM DAY 1 TO DAY 7)
     Route: 065
     Dates: start: 20220110
  9. VENETOCLAX [Suspect]
     Active Substance: VENETOCLAX
     Dosage: UNK UNK, UNKNOWN FREQ. (CYCLE 2 OF TRIOTHERAPY)
     Route: 065
     Dates: start: 20220211
  10. VENETOCLAX [Suspect]
     Active Substance: VENETOCLAX
     Dosage: UNK UNK, UNKNOWN FREQ. (CYCLE 3 OF TRIOTHERAPY)
     Route: 065
     Dates: start: 20220311
  11. POSACONAZOLE [Concomitant]
     Active Substance: POSACONAZOLE
     Indication: Infection
     Dosage: UNK UNK, UNKNOWN FREQ. (FROM DAY 8 TO DAY 28)
     Route: 065

REACTIONS (3)
  - Acute myeloid leukaemia [Fatal]
  - Off label use [Unknown]
  - Product use issue [Unknown]
